FAERS Safety Report 7616802-4 (Version None)
Quarter: 2011Q3

REPORT INFORMATION
  Report Type: 
  Country: None (occurrence: None)
  Receive Date: 20110718
  Receipt Date: 20110708
  Transmission Date: 20111222
  Serious: Yes (Hospitalization)
  Sender: FDA-Public Use
  Company Number: US-BIOGENIDEC-2011BI025592

PATIENT
  Age: 47 Year
  Sex: Female

DRUGS (1)
  1. AVONEX [Suspect]
     Indication: MULTIPLE SCLEROSIS
     Route: 030
     Dates: start: 20080611

REACTIONS (5)
  - RENAL FUNCTION TEST ABNORMAL [None]
  - HYPOTENSION [None]
  - VOMITING [None]
  - ADDISON'S DISEASE [None]
  - DEHYDRATION [None]
